FAERS Safety Report 25312153 (Version 2)
Quarter: 2025Q3

REPORT INFORMATION
  Report Type: Spontaneous
  Country: CN (occurrence: CN)
  Receive Date: 20250510
  Receipt Date: 20250722
  Transmission Date: 20251021
  Serious: Yes (Other)
  Sender: NOVO NORDISK
  Company Number: CN-NOVOPROD-1413742

PATIENT
  Age: 31 Year
  Sex: Male
  Weight: 57 kg

DRUGS (5)
  1. NOVORAPID [Suspect]
     Active Substance: INSULIN ASPART
     Indication: Type 1 diabetes mellitus
     Dosage: 35 IU, QD (11 UNITS IN THE MORNING, 12 UNITS AT NOON, AND 12 UNITS IN THE EVENING.)
  2. NOVORAPID [Suspect]
     Active Substance: INSULIN ASPART
     Indication: Latent autoimmune diabetes in adults
  3. INSULIN GLARGINE [Concomitant]
     Active Substance: INSULIN GLARGINE
  4. LEVEMIR [Suspect]
     Active Substance: INSULIN DETEMIR
     Indication: Latent autoimmune diabetes in adults
  5. LEVEMIR [Suspect]
     Active Substance: INSULIN DETEMIR
     Indication: Type 1 diabetes mellitus

REACTIONS (2)
  - Neuropathy peripheral [Not Recovered/Not Resolved]
  - Lipids increased [Unknown]

NARRATIVE: CASE EVENT DATE: 20241201
